FAERS Safety Report 7813275 (Version 6)
Quarter: 2013Q3

REPORT INFORMATION
  Report Type: Spontaneous
  Country: JP (occurrence: JP)
  Receive Date: 20110215
  Receipt Date: 20130710
  Transmission Date: 20140515
  Serious: Yes (Hospitalization)
  Sender: FDA-Public Use
  Company Number: JP-PFIZER INC-2011031823

PATIENT
  Age: 70 Year
  Sex: Female
  Weight: 47 kg

DRUGS (1)
  1. SUNITINIB MALATE [Suspect]
     Indication: RENAL CELL CARCINOMA
     Dosage: 50 MG, 1X/DAY
     Route: 048
     Dates: start: 20110124, end: 20110210

REACTIONS (2)
  - Toxic encephalopathy [Recovered/Resolved]
  - Platelet count decreased [Unknown]
